FAERS Safety Report 4384332-1 (Version None)
Quarter: 2004Q2

REPORT INFORMATION
  Report Type: 
  Country: None (occurrence: None)
  Receive Date: 20040618
  Receipt Date: 20040528
  Transmission Date: 20050107
  Serious: Yes (Other)
  Sender: FDA-Public Use
  Company Number: 04-143

PATIENT
  Age: 75 Year
  Sex: Female

DRUGS (6)
  1. HYDRALAZINE, POSSIBLY PAR [Suspect]
     Indication: HYPERTENSION
  2. VERAPAMIL [Concomitant]
  3. WARFARIN SODIUM [Concomitant]
  4. ADVAIR HFA [Concomitant]
  5. ALBUTEROL [Concomitant]
  6. ROFECOXIB [Concomitant]

REACTIONS (5)
  - DYSPNOEA [None]
  - OEDEMA [None]
  - OEDEMA PERIPHERAL [None]
  - PULMONARY OEDEMA [None]
  - WEIGHT INCREASED [None]
